FAERS Safety Report 7055273-6 (Version None)
Quarter: 2010Q4

REPORT INFORMATION
  Report Type: 
  Country: None (occurrence: None)
  Receive Date: 20101021
  Receipt Date: 20101011
  Transmission Date: 20110411
  Serious: Yes (Other)
  Sender: FDA-Public Use
  Company Number: GB-WYE-G06801410

PATIENT
  Sex: Female

DRUGS (1)
  1. CONJUGATED ESTROGENS [Suspect]
     Indication: HORMONE THERAPY
     Dosage: UNKNOWN
     Dates: end: 20101007

REACTIONS (6)
  - DEPRESSION [None]
  - DRUG DEPENDENCE [None]
  - DRUG WITHDRAWAL SYNDROME [None]
  - MENORRHAGIA [None]
  - PAIN IN EXTREMITY [None]
  - SUICIDAL IDEATION [None]
